FAERS Safety Report 5875408-8 (Version None)
Quarter: 2008Q3

REPORT INFORMATION
  Report Type: 
  Country: None (occurrence: None)
  Receive Date: 20080909
  Receipt Date: 20080908
  Transmission Date: 20090109
  Serious: Yes (Other)
  Sender: FDA-Public Use
  Company Number: US-BAYER-200825603NA

PATIENT
  Age: 16 Year
  Sex: Female
  Weight: 59 kg

DRUGS (3)
  1. MAGNEVIST [Suspect]
     Indication: ARTHROGRAM
     Route: 014
     Dates: start: 20060906, end: 20060906
  2. LIDOCAINE [Concomitant]
     Indication: ARTHROGRAM
     Route: 014
     Dates: start: 20060906, end: 20060906
  3. OTHER MEDICATIONS NOS [Concomitant]
     Indication: ARTHROGRAM
     Route: 014
     Dates: start: 20060906, end: 20060906

REACTIONS (17)
  - ABDOMINAL PAIN [None]
  - BACTERIA STOOL IDENTIFIED [None]
  - CHROMATURIA [None]
  - CLOSTRIDIUM DIFFICILE COLITIS [None]
  - CRYSTAL URINE PRESENT [None]
  - DIARRHOEA [None]
  - DIZZINESS [None]
  - EAR INFECTION [None]
  - FLANK PAIN [None]
  - HAEMATURIA [None]
  - HEADACHE [None]
  - KIDNEY FIBROSIS [None]
  - LIVER FUNCTION TEST ABNORMAL [None]
  - NAUSEA [None]
  - NEPHROLITHIASIS [None]
  - RENAL IMPAIRMENT [None]
  - VOMITING [None]
